FAERS Safety Report 25756323 (Version 1)
Quarter: 2025Q3

REPORT INFORMATION
  Report Type: Spontaneous
  Country: US (occurrence: None)
  Receive Date: 20250902
  Receipt Date: 20250902
  Transmission Date: 20251021
  Serious: No
  Sender: FDA-CTU
  Company Number: None

PATIENT

DRUGS (1)
  1. SKYRIZI [Suspect]
     Active Substance: RISANKIZUMAB-RZAA
     Dates: start: 20250729

REACTIONS (6)
  - Diarrhoea [None]
  - Headache [None]
  - Faeces discoloured [None]
  - Faeces pale [None]
  - Sleep disorder [None]
  - Frequent bowel movements [None]

NARRATIVE: CASE EVENT DATE: 20250826
